FAERS Safety Report 6740558-0 (Version None)
Quarter: 2010Q2

REPORT INFORMATION
  Report Type: 
  Country: None (occurrence: None)
  Receive Date: 20100520
  Receipt Date: 20100308
  Transmission Date: 20101027
  Serious: Yes (Other)
  Sender: FDA-Public Use
  Company Number: 2010035034

PATIENT
  Age: 30 Year
  Sex: Female

DRUGS (1)
  1. DEPO-PROVERA [Suspect]
     Indication: CONTRACEPTION
     Dates: start: 20090905

REACTIONS (11)
  - ABDOMINAL PAIN [None]
  - ACNE [None]
  - DEPRESSION [None]
  - HIRSUTISM [None]
  - INSOMNIA [None]
  - MENORRHAGIA [None]
  - METRORRHAGIA [None]
  - MIGRAINE [None]
  - NAUSEA [None]
  - NERVOUSNESS [None]
  - WEIGHT INCREASED [None]
